FAERS Safety Report 4275913-4 (Version None)
Quarter: 2004Q1

REPORT INFORMATION
  Report Type: 
  Country: None (occurrence: None)
  Receive Date: 20040121
  Receipt Date: 20030305
  Transmission Date: 20041129
  Serious: No
  Sender: FDA-Public Use
  Company Number: US-GLAXOSMITHKLINE-A0399045A

PATIENT
  Age: 41 Year
  Sex: Male

DRUGS (1)
  1. VALTREX [Suspect]
     Dosage: 3G PER DAY
     Route: 048

REACTIONS (1)
  - DRUG INEFFECTIVE [None]
